FAERS Safety Report 18693099 (Version 1)
Quarter: 2021Q1

REPORT INFORMATION
  Report Type: Other
  Country: US (occurrence: US)
  Receive Date: 20210104
  Receipt Date: 20210104
  Transmission Date: 20210419
  Serious: Yes (Other)
  Sender: FDA-Public Use
  Company Number: US-ROCHE-2740357

PATIENT
  Age: 50 Year
  Sex: Female
  Weight: 92.59 kg

DRUGS (18)
  1. DIPHENHYDRAMINE. [Concomitant]
     Active Substance: DIPHENHYDRAMINE
     Dosage: 50 MG/ML
     Route: 042
  2. KEPPRA [Concomitant]
     Active Substance: LEVETIRACETAM
     Dosage: 1 TABLET TWICE TIME DAILY + 2 AT BEDTIME
  3. TRAZODONE [Concomitant]
     Active Substance: TRAZODONE HYDROCHLORIDE
     Dosage: 1?2 TABLET
     Route: 048
  4. BOTOX [Concomitant]
     Active Substance: ONABOTULINUMTOXINA
     Dosage: 40 UNITS
  5. MARIJUANA [Concomitant]
     Active Substance: CANNABIS SATIVA SUBSP. INDICA TOP
     Dosage: OIL FOR INHALATION BY VAPOURIZATION
     Dates: start: 20190403
  6. VITAMIN D3 [Concomitant]
     Active Substance: CHOLECALCIFEROL
     Dosage: 250 MCG (10000 UNIT)
  7. TIZANIDINE. [Concomitant]
     Active Substance: TIZANIDINE
     Dosage: 1 TO 2 TABLET
     Route: 048
  8. VENTOLIN HFA [Concomitant]
     Active Substance: ALBUTEROL SULFATE
     Indication: WHEEZING
     Dosage: 90 MCG/ACTUATION AEROSOL INHALER, INHALE 2 PUFFS EVERY 4?6 HOURS
  9. LISINOPRIL. [Concomitant]
     Active Substance: LISINOPRIL
     Route: 048
  10. TRETINOIN. [Concomitant]
     Active Substance: TRETINOIN
     Dosage: APPLY EXTERNALLY TO FACE
     Route: 061
  11. ESTRADIOL. [Concomitant]
     Active Substance: ESTRADIOL
     Dosage: 0.1 MG/GRAM
     Route: 067
  12. METHYLPREDNISOLONE SODIUM SUCCINATE. [Concomitant]
     Active Substance: METHYLPREDNISOLONE SODIUM SUCCINATE
     Dosage: INFUSE 100 MG PER IV PRIOR TO EACH OCREVUS INFUSION
     Route: 042
  13. NORTRIPTYLINE [Concomitant]
     Active Substance: NORTRIPTYLINE
     Route: 048
  14. OCREVUS [Suspect]
     Active Substance: OCRELIZUMAB
     Dosage: ONGOING : YES
     Route: 042
  15. ALPRAZOLAM. [Concomitant]
     Active Substance: ALPRAZOLAM
     Route: 048
  16. DULOXETINE. [Concomitant]
     Active Substance: DULOXETINE
     Dosage: DELAYED RELEASE?2 CAPSULES EVERY DAY
     Route: 048
  17. VENTOLIN HFA [Concomitant]
     Active Substance: ALBUTEROL SULFATE
     Indication: DYSPNOEA
  18. OCREVUS [Suspect]
     Active Substance: OCRELIZUMAB
     Indication: MULTIPLE SCLEROSIS
     Dosage: ONGOING : YES
     Route: 042
     Dates: start: 20200706

REACTIONS (7)
  - Throat tightness [Unknown]
  - Urinary tract infection [Unknown]
  - Back pain [Unknown]
  - Oropharyngeal pain [Unknown]
  - Urge incontinence [Unknown]
  - Hypertonic bladder [Unknown]
  - Pruritus [Unknown]

NARRATIVE: CASE EVENT DATE: 20200909
